FAERS Safety Report 16015113 (Version 2)
Quarter: 2019Q2

REPORT INFORMATION
  Report Type: Spontaneous
  Country: NZ (occurrence: NZ)
  Receive Date: 20190227
  Receipt Date: 20190411
  Transmission Date: 20190711
  Serious: Yes (Other)
  Sender: FDA-Public Use
  Company Number: NZ-BAXTER-2019BAX003789

PATIENT
  Age: 60 Year
  Sex: Female

DRUGS (3)
  1. SODIUM CHLORIDE (VIAFLO) [Suspect]
     Active Substance: SODIUM CHLORIDE
     Indication: MEDICATION DILUTION
     Dosage: CYCLE 1
     Route: 042
     Dates: start: 20190129, end: 20190129
  2. PACLITAXEL (EBEWE) [Suspect]
     Active Substance: PACLITAXEL
     Indication: OVARIAN CANCER
     Dosage: CYCLE 1 (175 MG/M2)
     Route: 042
     Dates: start: 20190129, end: 20190129
  3. CARBOPLATIN. [Suspect]
     Active Substance: CARBOPLATIN
     Indication: OVARIAN CANCER
     Dosage: CYCLE 1
     Route: 065
     Dates: start: 20190129

REACTIONS (8)
  - Arthralgia [Recovering/Resolving]
  - Back pain [Recovering/Resolving]
  - Pelvic pain [Recovered/Resolved]
  - Rash [Recovered/Resolved]
  - Abdominal pain [Recovered/Resolved]
  - Dyspnoea [Recovered/Resolved]
  - Chest discomfort [Recovered/Resolved]
  - Hot flush [Recovering/Resolving]

NARRATIVE: CASE EVENT DATE: 20190129
